FAERS Safety Report 5144485-4 (Version None)
Quarter: 2006Q4

REPORT INFORMATION
  Report Type: 
  Country: None (occurrence: None)
  Receive Date: 20061106
  Receipt Date: 20060925
  Transmission Date: 20070319
  Serious: Yes (Hospitalization, Disabling)
  Sender: FDA-Public Use
  Company Number: GB-BOEHRINGER INGELHEIM GMBH, GERMANY-2006-UK-04037UK

PATIENT
  Age: 29 Year
  Sex: Female

DRUGS (2)
  1. VIRAMUNE [Suspect]
     Indication: HIV INFECTION
     Dates: start: 20030901
  2. COMBIVIR [Suspect]
     Indication: HIV INFECTION
     Dates: start: 20030901

REACTIONS (10)
  - DYSPNOEA EXERTIONAL [None]
  - HAEMOPTYSIS [None]
  - IMMUNE RECONSTITUTION SYNDROME [None]
  - INFECTION [None]
  - KAPOSI'S SARCOMA [None]
  - LUNG NEOPLASM [None]
  - LYMPHADENOPATHY [None]
  - LYMPHOEDEMA [None]
  - MOBILITY DECREASED [None]
  - SKIN ULCER [None]
